FAERS Safety Report 5880384-8 (Version None)
Quarter: 2008Q3

REPORT INFORMATION
  Report Type: 
  Country: None (occurrence: None)
  Receive Date: 20080912
  Receipt Date: 20080603
  Transmission Date: 20090109
  Serious: No
  Sender: FDA-Public Use
  Company Number: US-ABBOTT-07P-163-0426315-00

PATIENT
  Sex: Male
  Weight: 83.99 kg

DRUGS (8)
  1. HUMIRA [Suspect]
     Indication: RHEUMATOID ARTHRITIS
     Route: 058
     Dates: start: 20060101
  2. HUMIRA [Suspect]
  3. PREDNISONE TAB [Concomitant]
     Indication: RHEUMATOID ARTHRITIS
     Dosage: 1MG; UP TO 5MG A DAY AS NEEDED
     Route: 048
  4. CELECOXIB [Concomitant]
     Indication: RHEUMATOID ARTHRITIS
     Route: 048
  5. LEVETIRACETAM [Concomitant]
     Indication: CONVULSION
     Dosage: 500 MG IN AM, 1000 MG AT BED TIME
     Route: 048
     Dates: start: 20060101
  6. MULTI-VITAMIN [Concomitant]
     Indication: MEDICAL DIET
     Route: 048
  7. CYANOCOBALAMIN [Concomitant]
     Indication: MEDICAL DIET
     Route: 048
  8. FISH OIL [Concomitant]
     Indication: MEDICAL DIET
     Route: 048

REACTIONS (2)
  - ACCIDENTAL EXPOSURE [None]
  - DRUG INEFFECTIVE [None]
